FAERS Safety Report 18451989 (Version 1)
Quarter: 2020Q4

REPORT INFORMATION
  Report Type: Spontaneous
  Country: US (occurrence: US)
  Receive Date: 20201031
  Receipt Date: 20201031
  Transmission Date: 20210114
  Serious: Yes (Hospitalization)
  Sender: FDA-Public Use
  Company Number: None

PATIENT
  Age: 84 Year
  Sex: Female
  Weight: 88.65 kg

DRUGS (13)
  1. CITALOPRAM [Concomitant]
     Active Substance: CITALOPRAM HYDROBROMIDE
  2. LIDOCAINE 5% [Concomitant]
     Active Substance: LIDOCAINE
  3. CALAMINE MEDICATED 1-8% [Concomitant]
  4. ATENOLOL 25MG [Concomitant]
     Active Substance: ATENOLOL
  5. VITAMIN D 50MCG [Concomitant]
  6. XARELTO [Concomitant]
     Active Substance: RIVAROXABAN
  7. GLIPIZIDE XL 5MG [Concomitant]
  8. MELATONIN ER 3MG [Concomitant]
  9. CAPECITABINE. [Suspect]
     Active Substance: CAPECITABINE
     Indication: CHOLANGIOCARCINOMA
     Route: 048
     Dates: start: 20201003
  10. PROCHLORPERAZINE 10MG [Concomitant]
  11. TRADJENTA [Concomitant]
     Active Substance: LINAGLIPTIN
  12. CHOLESTYRAMINE 4GM [Concomitant]
  13. MULTIVITAMIN [Concomitant]
     Active Substance: VITAMINS

REACTIONS (3)
  - Vomiting [None]
  - Nausea [None]
  - Fatigue [None]

NARRATIVE: CASE EVENT DATE: 20201029
